FAERS Safety Report 9901254 (Version 1)
Quarter: 2014Q1

REPORT INFORMATION
  Report Type: Spontaneous
  Country: GB (occurrence: GB)
  Receive Date: 20140217
  Receipt Date: 20140217
  Transmission Date: 20141002
  Serious: Yes (Other)
  Sender: FDA-Public Use
  Company Number: GB-UCBSA-112122

PATIENT
  Age: 66 Year
  Sex: Female

DRUGS (2)
  1. CIMZIA [Suspect]
     Indication: RHEUMATOID ARTHRITIS
     Dosage: STRENGTH: 200MG, 400MG FORTNIGHTLY
     Route: 058
     Dates: start: 20140103
  2. NO CONCOMITANT MEDICATION [Concomitant]

REACTIONS (2)
  - Cardiac flutter [Not Recovered/Not Resolved]
  - Hyperhidrosis [Not Recovered/Not Resolved]
